FAERS Safety Report 8608051-8 (Version None)
Quarter: 2012Q3

REPORT INFORMATION
  Report Type: 
  Country: None (occurrence: None)
  Receive Date: 20120821
  Receipt Date: 20120811
  Transmission Date: 20120928
  Serious: Yes (Other)
  Sender: FDA-Public Use
  Company Number: US-BAYER-2012-034605

PATIENT
  Age: 32 Year
  Sex: Female
  Weight: 60.771 kg

DRUGS (12)
  1. DROSPIRENONE AND ETHINYL ESTRADIOL [Suspect]
     Indication: CONTRACEPTION
     Dosage: UNK
     Route: 048
     Dates: start: 20060101, end: 20110101
  2. TRIAMTERENE [Concomitant]
     Dosage: 37.5-25 MG
     Route: 048
     Dates: start: 20110505
  3. BYSTOLIC [Concomitant]
     Dosage: 5 MG, UNK
     Route: 048
     Dates: start: 20110505
  4. IBUPROFEN [Concomitant]
     Indication: HEADACHE
     Dosage: 200 TO 400 MG, UNK
  5. HYDROCODONE BITARTRATE + ACETAMINOPHEN [Concomitant]
     Dosage: 5-500MG
     Route: 048
  6. AZITHROMYCIN [Concomitant]
     Dosage: 250 MG, UNK
     Route: 048
  7. YAZ [Suspect]
     Indication: CONTRACEPTION
     Dosage: UNK
     Route: 048
     Dates: start: 20060101, end: 20110101
  8. YASMIN [Suspect]
     Indication: CONTRACEPTION
     Dosage: UNK
     Route: 048
     Dates: start: 20060101, end: 20110101
  9. CYMBALTA [Concomitant]
     Indication: BACK PAIN
     Dosage: 30 MG, UNK
     Route: 048
  10. ANTI-INFLAMMATORIES [Concomitant]
  11. PROMETHAZINE [Concomitant]
     Dosage: 25 MG, UNK
     Route: 048
  12. IBUPROFEN [Concomitant]
     Indication: BACK PAIN

REACTIONS (5)
  - FEAR [None]
  - DEEP VEIN THROMBOSIS [None]
  - MENTAL DISORDER [None]
  - PAIN [None]
  - INJURY [None]
